FAERS Safety Report 10133653 (Version 1)
Quarter: 2014Q2

REPORT INFORMATION
  Report Type: Spontaneous
  Country: US (occurrence: US)
  Receive Date: 20140428
  Receipt Date: 20140428
  Transmission Date: 20141212
  Serious: No
  Sender: FDA-Public Use
  Company Number: US-009507513-1404USA003158

PATIENT
  Sex: Female

DRUGS (4)
  1. VICTRELIS [Suspect]
     Indication: HEPATITIS C
     Dosage: 800 MG, TID
     Route: 048
     Dates: start: 20130915, end: 20140201
  2. REBETOL [Suspect]
     Dosage: 400 MG, BID(IN THE MORNING AND EVENING)
     Route: 048
     Dates: end: 20140201
  3. PEGASYS [Suspect]
     Dosage: 180 MICROGRAM, QW(WEEKLY)
     Route: 065
     Dates: end: 20140201
  4. LEVOTHYROXINE SODIUM [Concomitant]
     Dosage: UNK
     Route: 048

REACTIONS (1)
  - Alopecia [Not Recovered/Not Resolved]
